FAERS Safety Report 24468235 (Version 2)
Quarter: 2024Q4

REPORT INFORMATION
  Report Type: Spontaneous
  Country: JP (occurrence: JP)
  Receive Date: 20241018
  Receipt Date: 20241125
  Transmission Date: 20250115
  Serious: Yes (Hospitalization)
  Sender: ELI LILLY AND COMPANY
  Company Number: JP-ELI_LILLY_AND_COMPANY-JP202410006619

PATIENT
  Age: 72 Year
  Sex: Female
  Weight: 57 kg

DRUGS (13)
  1. MOUNJARO [Suspect]
     Active Substance: TIRZEPATIDE
     Indication: Type 2 diabetes mellitus
     Dosage: 2.5 MG, WEEKLY (1/W)
     Route: 058
     Dates: start: 20240509, end: 20240703
  2. MOUNJARO [Suspect]
     Active Substance: TIRZEPATIDE
     Dosage: 5.0 MG
     Route: 058
     Dates: start: 20240704, end: 202408
  3. SULFAMETHOXAZOLE\TRIMETHOPRIM [Concomitant]
     Active Substance: SULFAMETHOXAZOLE\TRIMETHOPRIM
  4. ESOMEPRAZOLE [Concomitant]
     Active Substance: ESOMEPRAZOLE
  5. ELDECALCITOL [Concomitant]
     Active Substance: ELDECALCITOL
  6. BONALON [Concomitant]
     Active Substance: ALENDRONATE SODIUM
  7. PREDONINE [Concomitant]
     Active Substance: PREDNISOLONE
     Dosage: 8 MG
  8. PROGRAF [Concomitant]
     Active Substance: TACROLIMUS
     Dosage: 5 MG
  9. METFORMIN HYDROCHLORIDE [Concomitant]
     Active Substance: METFORMIN HYDROCHLORIDE
     Dosage: 1000 MG
  10. JARDIANCE [Concomitant]
     Active Substance: EMPAGLIFLOZIN
     Dosage: UNK
  11. MITIGLINIDE [Concomitant]
     Active Substance: MITIGLINIDE
     Dosage: UNK
  12. RYZODEG 70/30 [Concomitant]
     Active Substance: INSULIN ASPART\INSULIN DEGLUDEC
     Dosage: UNK
  13. ROSUVASTATIN [Concomitant]
     Active Substance: ROSUVASTATIN
     Dosage: UNK

REACTIONS (2)
  - Diverticular perforation [Recovered/Resolved]
  - Off label use [Unknown]

NARRATIVE: CASE EVENT DATE: 20240817
